FAERS Safety Report 18247942 (Version 2)
Quarter: 2020Q3

REPORT INFORMATION
  Report Type: Spontaneous
  Country: US (occurrence: US)
  Receive Date: 20200909
  Receipt Date: 20200920
  Transmission Date: 20201103
  Serious: No
  Sender: FDA-Public Use
  Company Number: US-JNJFOC-20200907612

PATIENT
  Age: 6 Decade
  Sex: Female
  Weight: 64.47 kg

DRUGS (1)
  1. WOMENS ROGAINE [Suspect]
     Active Substance: MINOXIDIL
     Indication: ALOPECIA
     Dosage: DOSE: 1 ON THE DROPPER WHATEVER THE INSTRUCTION TELL?PRODUCT LAST ADMINISTERED ON 09?SEPT?2020
     Route: 061
     Dates: start: 202005

REACTIONS (1)
  - Drug ineffective [Unknown]
